FAERS Safety Report 5274440-5 (Version None)
Quarter: 2007Q1

REPORT INFORMATION
  Report Type: 
  Country: None (occurrence: None)
  Receive Date: 20070320
  Receipt Date: 20070313
  Transmission Date: 20070707
  Serious: Yes (Death)
  Sender: FDA-Public Use
  Company Number: 237000

PATIENT
  Age: 60 Year
  Sex: Female
  Weight: 43.5 kg

DRUGS (11)
  1. AVASTIN [Suspect]
     Indication: COLORECTAL CANCER METASTATIC
     Dosage: 445 MG, SINGLE, INTRAVENOUS
     Route: 042
     Dates: start: 20070213, end: 20070213
  2. OXALIPLATIN [Suspect]
     Indication: COLORECTAL CANCER METASTATIC
     Dosage: 157 MG, SINGLE, INTRAVENOUS
     Route: 042
     Dates: start: 20070213, end: 20070213
  3. FLUOROURACIL [Suspect]
     Indication: COLORECTAL CANCER METASTATIC
     Dosage: 4440 MG, SINGLE, INTRAVENOUS, 740 MG, SINGLE, IV BOLUS
     Route: 042
     Dates: start: 20070213, end: 20070216
  4. FLUOROURACIL [Suspect]
     Indication: COLORECTAL CANCER METASTATIC
     Dosage: 4440 MG, SINGLE, INTRAVENOUS, 740 MG, SINGLE, IV BOLUS
     Route: 042
     Dates: start: 20070213, end: 20070216
  5. LEUCOVORIN CALCIUM [Suspect]
     Indication: COLORECTAL CANCER METASTATIC
     Dosage: 740 MG, SINGLE, INTRAVENOUS
     Route: 042
     Dates: start: 20070213, end: 20070213
  6. VALSARTAN [Concomitant]
  7. EZETIMIBE [Concomitant]
  8. MELOXICAM [Concomitant]
  9. NIACIN (NIACIN) [Concomitant]
  10. ASPIRIN [Concomitant]
  11. FLONASE [Concomitant]

REACTIONS (3)
  - MYOCARDIAL INFARCTION [None]
  - PULMONARY EMBOLISM [None]
  - SUDDEN CARDIAC DEATH [None]
